FAERS Safety Report 6385000-7 (Version None)
Quarter: 2009Q4

REPORT INFORMATION
  Report Type: 
  Country: None (occurrence: None)
  Receive Date: 20091002
  Receipt Date: 20090325
  Transmission Date: 20100525
  Serious: Yes (Life-Threatening, Other)
  Sender: FDA-Public Use
  Company Number: PHEH2009US12497

PATIENT

DRUGS (1)
  1. ZOMETA [Suspect]

REACTIONS (7)
  - FEELING ABNORMAL [None]
  - JAW DISORDER [None]
  - MENTAL DISABILITY [None]
  - NEOPLASM MALIGNANT [None]
  - ORAL PAIN [None]
  - TOOTH LOSS [None]
  - TOOTHACHE [None]
